FAERS Safety Report 18566571 (Version 1)
Quarter: 2020Q4

REPORT INFORMATION
  Report Type: Report from Study
  Country: US (occurrence: US)
  Receive Date: 20201201
  Receipt Date: 20201201
  Transmission Date: 20210114
  Serious: Yes (Death)
  Sender: FDA-Public Use
  Company Number: US-JNJFOC-20201146515

PATIENT
  Age: 68 Year
  Sex: Female

DRUGS (5)
  1. SPRAVATO [Suspect]
     Active Substance: ESKETAMINE
     Indication: DEPRESSION
     Dosage: 28MG, 2 TOTAL DOSES
     Dates: start: 20200205, end: 20200210
  2. SPRAVATO [Suspect]
     Active Substance: ESKETAMINE
     Dates: start: 20200729, end: 20200729
  3. SPRAVATO [Suspect]
     Active Substance: ESKETAMINE
     Dates: start: 20200804, end: 20200804
  4. SPRAVATO [Suspect]
     Active Substance: ESKETAMINE
     Dosage: 84MG, 6 TOTAL DOSES
     Dates: start: 20200217, end: 20200319
  5. SPRAVATO [Suspect]
     Active Substance: ESKETAMINE
     Dates: start: 20200212, end: 20200212

REACTIONS (2)
  - COVID-19 [Fatal]
  - Adverse event [Fatal]
